FAERS Safety Report 5192126-2 (Version None)
Quarter: 2006Q4

REPORT INFORMATION
  Report Type: 
  Country: None (occurrence: None)
  Receive Date: 20061220
  Receipt Date: 20061206
  Transmission Date: 20070319
  Serious: Yes (Other)
  Sender: FDA-Public Use
  Company Number: PHNU2006DE04090

PATIENT
  Age: 74 Year
  Sex: Female

DRUGS (2)
  1. VISUDYNE [Suspect]
     Indication: CHOROIDAL NEOVASCULARISATION
     Dates: start: 20031126, end: 20031126
  2. VISUDYNE [Suspect]
     Indication: CHOROIDAL NEOVASCULARISATION
     Dates: start: 20030723, end: 20030723

REACTIONS (3)
  - CHORIORETINAL DISORDER [None]
  - DETACHMENT OF RETINAL PIGMENT EPITHELIUM [None]
  - NO THERAPEUTIC RESPONSE [None]
